FAERS Safety Report 23730486 (Version 3)
Quarter: 2024Q3

REPORT INFORMATION
  Report Type: Report from Study
  Country: AR (occurrence: AR)
  Receive Date: 20240411
  Receipt Date: 20240710
  Transmission Date: 20241017
  Serious: Yes (Hospitalization, Other)
  Sender: NOVARTIS
  Company Number: AR-002147023-NVSC2023AR034323

PATIENT
  Age: 60 Year
  Sex: Female

DRUGS (5)
  1. COSENTYX [Suspect]
     Active Substance: SECUKINUMAB
     Indication: Psoriatic arthropathy
     Dosage: 150 MG, QMO
     Route: 058
     Dates: start: 20230208
  2. COSENTYX [Suspect]
     Active Substance: SECUKINUMAB
     Dosage: UNK
     Route: 058
  3. COSENTYX [Suspect]
     Active Substance: SECUKINUMAB
     Dosage: 150 MG, QW
     Route: 058
  4. COSENTYX [Suspect]
     Active Substance: SECUKINUMAB
     Dosage: 150 MG, QMO
     Route: 058
     Dates: start: 20230901
  5. COSENTYX [Suspect]
     Active Substance: SECUKINUMAB
     Dosage: 150 MG, QMO
     Route: 058

REACTIONS (20)
  - Drug hypersensitivity [Unknown]
  - Cyst [Unknown]
  - Psoriatic arthropathy [Unknown]
  - Pruritus [Unknown]
  - Peripheral swelling [Unknown]
  - Gait disturbance [Unknown]
  - Back pain [Unknown]
  - Arthralgia [Unknown]
  - Choking sensation [Recovered/Resolved]
  - Mass [Unknown]
  - Oropharyngeal discomfort [Recovered/Resolved]
  - Pain [Unknown]
  - Nervousness [Unknown]
  - Dyspnoea [Recovered/Resolved]
  - Joint dislocation [Unknown]
  - Movement disorder [Unknown]
  - Hypersensitivity [Unknown]
  - Off label use [Unknown]
  - Renal cyst [Unknown]
  - Thyroglossal cyst [Unknown]

NARRATIVE: CASE EVENT DATE: 20230208
